FAERS Safety Report 7973405-X (Version None)
Quarter: 2011Q4

REPORT INFORMATION
  Report Type: 
  Country: None (occurrence: None)
  Receive Date: 20111213
  Receipt Date: 20110914
  Transmission Date: 20120403
  Serious: No
  Sender: FDA-Public Use
  Company Number: US-AMGEN-USASP2011047128

PATIENT
  Age: 92 Year
  Sex: Female

DRUGS (7)
  1. ARANESP [Suspect]
     Indication: ANAEMIA
     Dates: start: 20040101
  2. ARICEPT [Concomitant]
  3. LISINOPRIL [Concomitant]
  4. CELEXA [Concomitant]
  5. COLACE [Concomitant]
  6. FERROUS SULFATE TAB [Concomitant]
  7. LASIX [Concomitant]

REACTIONS (1)
  - HAEMOGLOBIN DECREASED [None]
